FAERS Safety Report 9709311 (Version 3)
Quarter: 2014Q1

REPORT INFORMATION
  Report Type: Spontaneous
  Country: FR (occurrence: FR)
  Receive Date: 20131125
  Receipt Date: 20140204
  Transmission Date: 20141002
  Serious: Yes (Hospitalization, Other)
  Sender: FDA-Public Use
  Company Number: FR-BMSGILMSD-2013-0083170

PATIENT
  Age: 44 Year
  Sex: Male

DRUGS (6)
  1. ATRIPLA [Suspect]
     Indication: HIV INFECTION
     Dosage: UNK
     Dates: start: 20110114
  2. ATRIPLA [Suspect]
     Dosage: UNK
     Dates: end: 20130221
  3. TRUVADA [Concomitant]
     Indication: HIV INFECTION
     Dosage: UNK
     Dates: start: 200801, end: 20110114
  4. KALETRA [Concomitant]
     Indication: HIV INFECTION
     Dosage: UNK
     Dates: start: 200801, end: 20110114
  5. CIFLOX                             /00697201/ [Concomitant]
     Dosage: 500 DF, CYCLICAL
     Dates: start: 201301
  6. ANTI BK [Concomitant]
     Dosage: UNK
     Dates: start: 201101, end: 201110

REACTIONS (4)
  - Multiple-drug resistance [Unknown]
  - Genotype drug resistance test positive [Unknown]
  - Diarrhoea [Unknown]
  - Drug intolerance [Unknown]
